FAERS Safety Report 23984093 (Version 1)
Quarter: 2024Q2

REPORT INFORMATION
  Report Type: Spontaneous
  Country: US (occurrence: US)
  Receive Date: 20240618
  Receipt Date: 20240618
  Transmission Date: 20240715
  Serious: No
  Sender: FDA-Public Use
  Company Number: US-Blueprint Medicines Corporation-3873

PATIENT
  Sex: Male

DRUGS (1)
  1. AYVAKIT [Suspect]
     Active Substance: AVAPRITINIB
     Indication: Systemic mastocytosis
     Route: 065
     Dates: start: 20240522

REACTIONS (6)
  - Fluid retention [Unknown]
  - Arthralgia [Unknown]
  - Myalgia [Unknown]
  - Chest pain [Unknown]
  - Neck pain [Unknown]
  - Eye disorder [Unknown]
